FAERS Safety Report 9879988 (Version 2)
Quarter: 2014Q1

REPORT INFORMATION
  Report Type: Spontaneous
  Country: DE (occurrence: DE)
  Receive Date: 20140207
  Receipt Date: 20140227
  Transmission Date: 20141002
  Serious: Yes (Other)
  Sender: FDA-Public Use
  Company Number: DE-AMGEN-DEUSP2014007278

PATIENT
  Age: 80 Year
  Sex: Female
  Weight: 64 kg

DRUGS (6)
  1. XGEVA [Suspect]
     Indication: METASTASES TO BONE
     Dosage: 120 MG, Q4WK
     Route: 058
     Dates: start: 20110817, end: 20140109
  2. XGEVA [Suspect]
     Indication: BREAST CANCER
  3. HERCEPTIN [Concomitant]
     Indication: BREAST CANCER METASTATIC
     Dosage: 6 MG/KG, UNK
     Route: 042
     Dates: start: 200901, end: 20140130
  4. MARCUMAR [Concomitant]
     Indication: DEEP VEIN THROMBOSIS
     Dosage: UNK UNK, QD
     Route: 048
     Dates: start: 200909
  5. VOLTAREN RESINAT [Concomitant]
     Indication: PAIN IN EXTREMITY
     Dosage: UNK UNK, AS NECESSARY
     Route: 048
     Dates: start: 2008
  6. FEMARA [Concomitant]
     Indication: BREAST CANCER
     Dosage: 2.5 MG, QD
     Route: 048
     Dates: start: 2008

REACTIONS (3)
  - Osteonecrosis of jaw [Recovering/Resolving]
  - Tooth disorder [Unknown]
  - Rhinorrhoea [Unknown]
